FAERS Safety Report 9549501 (Version 3)
Quarter: 2014Q4

REPORT INFORMATION
  Report Type: Spontaneous
  Country: US (occurrence: US)
  Receive Date: 20130924
  Receipt Date: 20141117
  Transmission Date: 20150529
  Serious: Yes (Hospitalization)
  Sender: FDA-Public Use
  Company Number: US-BAYER-2013-115578

PATIENT
  Age: 22 Year
  Sex: Female
  Weight: 62.59 kg

DRUGS (1)
  1. OCELLA [Suspect]
     Active Substance: DROSPIRENONE\ETHINYL ESTRADIOL
     Indication: CONTRACEPTION
     Dosage: UNK
     Dates: start: 20100630, end: 201112

REACTIONS (4)
  - Pain [None]
  - Injury [None]
  - General physical health deterioration [None]
  - Cerebrovascular accident [None]

NARRATIVE: CASE EVENT DATE: 20111228
